FAERS Safety Report 5016966-5 (Version None)
Quarter: 2006Q2

REPORT INFORMATION
  Report Type: 
  Country: None (occurrence: None)
  Receive Date: 20060526
  Receipt Date: 20060519
  Transmission Date: 20061013
  Serious: Yes (Death, Hospitalization)
  Sender: FDA-Public Use
  Company Number: 163-20785-06050623

PATIENT
  Age: 62 Year
  Sex: Female

DRUGS (2)
  1. THALOMID [Suspect]
     Indication: MALIGNANT MELANOMA
     Dosage: 100 MG, DAILY, ORAL
     Route: 048
     Dates: start: 20050101, end: 20050101
  2. THALOMID [Suspect]
     Indication: MALIGNANT MELANOMA
     Dosage: 100 MG, DAILY, ORAL
     Route: 048
     Dates: start: 20060301, end: 20060501

REACTIONS (2)
  - DISEASE PROGRESSION [None]
  - MALNUTRITION [None]
